FAERS Safety Report 18330377 (Version 3)
Quarter: 2020Q4

REPORT INFORMATION
  Report Type: Spontaneous
  Country: FR (occurrence: FR)
  Receive Date: 20200930
  Receipt Date: 20201217
  Transmission Date: 20210113
  Serious: Yes (Hospitalization)
  Sender: FDA-Public Use
  Company Number: FR-MYLANLABS-2020M1081955

PATIENT
  Age: 79 Year
  Sex: Female
  Weight: 72 kg

DRUGS (13)
  1. CEFTRIAXONE. [Suspect]
     Active Substance: CEFTRIAXONE
     Indication: SPONDYLITIS
     Dosage: 2 GRAM, QD
     Route: 042
     Dates: start: 20200715, end: 20200814
  2. KARDEGIC [Suspect]
     Active Substance: ASPIRIN DL-LYSINE
     Indication: ATRIAL FIBRILLATION
     Dosage: 75 MILLIGRAM, QD
     Route: 048
     Dates: start: 20200722, end: 20200814
  3. INSULINE GLARGINE [Concomitant]
     Active Substance: INSULIN GLARGINE
     Dosage: INCONNUE
     Dates: start: 20200701
  4. FENTANYL. [Suspect]
     Active Substance: FENTANYL
     Indication: PAIN
     Dosage: 12 MICROGRAM, QH
     Route: 062
     Dates: start: 20200710, end: 20200814
  5. AMPHOTERICINE B [Suspect]
     Active Substance: AMPHOTERICIN B
     Indication: ORAL CANDIDIASIS
     Dosage: INCONNUE
     Route: 048
     Dates: start: 20200728, end: 20200814
  6. CARVEDILOL. [Concomitant]
     Active Substance: CARVEDILOL
     Indication: PRODUCT USED FOR UNKNOWN INDICATION
     Dosage: 6.25 MILLIGRAM, QD
     Route: 065
     Dates: start: 20200703
  7. CIPROFLOXACIN. [Suspect]
     Active Substance: CIPROFLOXACIN
     Indication: SPONDYLITIS
     Dosage: 1500 MILLIGRAM, QD
     Route: 048
     Dates: start: 20200710, end: 20200814
  8. ACENOCOUMAROL [Suspect]
     Active Substance: ACENOCOUMAROL
     Indication: ATRIAL FIBRILLATION
     Dosage: 3 MILLIGRAM, QD
     Route: 048
     Dates: start: 20200630, end: 20200814
  9. FUROSEMIDE. [Concomitant]
     Active Substance: FUROSEMIDE
     Dosage: INCONNUE
     Dates: start: 20200701
  10. HYDROXYZINE [Suspect]
     Active Substance: HYDROXYZINE HYDROCHLORIDE
     Indication: PRODUCT USED FOR UNKNOWN INDICATION
     Dosage: INCONNUE
     Dates: start: 20200721, end: 20200814
  11. COUMADIN [Suspect]
     Active Substance: WARFARIN SODIUM
     Indication: ATRIAL FIBRILLATION
     Dosage: 3 MILLIGRAM, QD
     Route: 048
     Dates: start: 20200630, end: 20200814
  12. ORAMORPH [Suspect]
     Active Substance: MORPHINE SULFATE
     Indication: PAIN
     Dosage: 2.5 MILLIGRAM, Q6H, SI BESOIN
     Route: 048
     Dates: start: 20200704, end: 20200814
  13. CARVEDILOL. [Concomitant]
     Active Substance: CARVEDILOL
     Dosage: 3.13 MILLIGRAM
     Route: 065
     Dates: start: 20200703

REACTIONS (10)
  - Oedema peripheral [Recovered/Resolved]
  - Breath sounds [Unknown]
  - Splenomegaly [Unknown]
  - Intra-abdominal fluid collection [Unknown]
  - Hepatocellular injury [Not Recovered/Not Resolved]
  - Rash maculo-papular [Not Recovered/Not Resolved]
  - Hypercreatininaemia [Recovered/Resolved]
  - Eosinophilia [Recovered/Resolved]
  - Cheilitis [Unknown]
  - Glossitis [Unknown]

NARRATIVE: CASE EVENT DATE: 202008
